FAERS Safety Report 20770861 (Version 1)
Quarter: 2022Q2

REPORT INFORMATION
  Report Type: Other
  Country: None (occurrence: ES)
  Receive Date: 20220429
  Receipt Date: 20220429
  Transmission Date: 20220720
  Serious: Yes (Other)
  Sender: FDA-Public Use
  Company Number: ES-B.Braun Medical Inc.-2128330

PATIENT
  Age: 62 Year
  Sex: Male

DRUGS (5)
  1. CEFTRIAXONE SODIUM [Suspect]
     Active Substance: CEFTRIAXONE SODIUM
  2. LEVOFLOXACIN [Suspect]
     Active Substance: LEVOFLOXACIN
  3. PIPERACILLIN AND TAZOBACTAM [Suspect]
     Active Substance: PIPERACILLIN SODIUM\TAZOBACTAM SODIUM
  4. CLARITHROMYCIN [Suspect]
     Active Substance: CLARITHROMYCIN
  5. DEXKETOPROFEN [Suspect]
     Active Substance: DEXKETOPROFEN

REACTIONS (1)
  - Cholestatic liver injury [Unknown]
